FAERS Safety Report 17463237 (Version 3)
Quarter: 2020Q1

REPORT INFORMATION
  Report Type: Report from Study
  Country: MX (occurrence: MX)
  Receive Date: 20200226
  Receipt Date: 20200310
  Transmission Date: 20200409
  Serious: Yes (Life-Threatening)
  Sender: FDA-Public Use
  Company Number: NVSC2020MX053838

PATIENT
  Sex: Female
  Weight: 68 kg

DRUGS (4)
  1. BEZAFIBRATO [Concomitant]
     Indication: BLOOD TRIGLYCERIDES
     Dosage: 1 DF (200 MG), QD (AT NIGHT) (2 MONTHS AGO)
     Route: 048
  2. PENTOXIFYLLINE. [Concomitant]
     Active Substance: PENTOXIFYLLINE
     Indication: PRODUCT USED FOR UNKNOWN INDICATION
     Dosage: 40 MG, Q24H (STARTED 2 MONTHS AGO)
     Route: 048
  3. ATORVASTATIN [Concomitant]
     Active Substance: ATORVASTATIN
     Indication: VARICES OESOPHAGEAL
     Dosage: 1 DF (40 MG), QD (AT NIGHT) (2 MONTHS AGO)
     Route: 048
  4. EXFORGE HCT [Suspect]
     Active Substance: AMLODIPINE BESYLATE\HYDROCHLOROTHIAZIDE\VALSARTAN
     Indication: BLOOD PRESSURE INCREASED
     Dosage: 1 DF (10/320/25 MG), QD
     Route: 048

REACTIONS (6)
  - Anaemia [Not Recovered/Not Resolved]
  - Weight decreased [Recovered/Resolved]
  - Panic attack [Recovering/Resolving]
  - Fear [Recovering/Resolving]
  - Anxiety [Recovering/Resolving]
  - Feeling abnormal [Recovering/Resolving]
